FAERS Safety Report 20741673 (Version 1)
Quarter: 2022Q2

REPORT INFORMATION
  Report Type: Report from Study
  Country: US (occurrence: US)
  Receive Date: 20220422
  Receipt Date: 20220422
  Transmission Date: 20220721
  Serious: Yes (Hospitalization, Congenital Anomaly, Other)
  Sender: FDA-Public Use
  Company Number: US-BRISTOL-MYERS SQUIBB COMPANY-2022-022011

PATIENT
  Age: 63 Year
  Sex: Female
  Weight: 129 kg

DRUGS (1)
  1. REVLIMID [Suspect]
     Active Substance: LENALIDOMIDE
     Indication: 5q minus syndrome
     Route: 048
     Dates: start: 20220412

REACTIONS (4)
  - Osteogenesis imperfecta [Unknown]
  - Fatigue [Unknown]
  - Dyspnoea exertional [Unknown]
  - Anaemia macrocytic [Unknown]
